FAERS Safety Report 18556884 (Version 1)
Quarter: 2020Q4

REPORT INFORMATION
  Report Type: Spontaneous
  Country: IN (occurrence: IN)
  Receive Date: 20201129
  Receipt Date: 20201129
  Transmission Date: 20210114
  Serious: Yes (Hospitalization)
  Sender: FDA-Public Use
  Company Number: IN-UNICHEM PHARMACEUTICALS (USA) INC-UCM202011-001385

PATIENT
  Age: 80 Year
  Sex: Male

DRUGS (8)
  1. DIVALPROEX SODIUM. [Suspect]
     Active Substance: DIVALPROEX SODIUM
     Indication: NEUROPSYCHIATRIC SYMPTOMS
  2. DONEPEZIL + MEMANTINE [Concomitant]
     Indication: NEUROPSYCHIATRIC SYMPTOMS
  3. QUETIAPINE. [Concomitant]
     Active Substance: QUETIAPINE
  4. QUETIAPINE. [Concomitant]
     Active Substance: QUETIAPINE
     Indication: NEUROPSYCHIATRIC SYMPTOMS
  5. ENALAPRIL [Concomitant]
     Active Substance: ENALAPRIL
     Indication: HYPERTENSION
  6. DUOLIN [Concomitant]
     Indication: ASTHMA
     Dosage: UNKNOWN
  7. DOPAMINE [Concomitant]
     Active Substance: DOPAMINE HYDROCHLORIDE
     Indication: NEUROPSYCHIATRIC SYMPTOMS
  8. QUETIAPINE. [Concomitant]
     Active Substance: QUETIAPINE

REACTIONS (2)
  - Encephalopathy [Recovered/Resolved]
  - Normal pressure hydrocephalus [Recovered/Resolved]
